FAERS Safety Report 5826986-6 (Version None)
Quarter: 2008Q3

REPORT INFORMATION
  Report Type: 
  Country: None (occurrence: None)
  Receive Date: 20080725
  Receipt Date: 20080714
  Transmission Date: 20090109
  Serious: Yes (Hospitalization)
  Sender: FDA-Public Use
  Company Number: 08-001154

PATIENT
  Age: 40 Year
  Sex: Male

DRUGS (2)
  1. TACLONEX [Suspect]
     Dosage: TOPICAL
     Route: 061
  2. HUMIRA [Suspect]

REACTIONS (1)
  - DERMATITIS EXFOLIATIVE [None]
